FAERS Safety Report 24847460 (Version 1)
Quarter: 2025Q1

REPORT INFORMATION
  Report Type: Spontaneous
  Country: FR (occurrence: FR)
  Receive Date: 20250116
  Receipt Date: 20250116
  Transmission Date: 20250409
  Serious: Yes (Hospitalization)
  Sender: CHEPLAPHARM
  Company Number: None

PATIENT
  Age: 86 Year
  Sex: Male
  Weight: 65.8 kg

DRUGS (14)
  1. HYDROXYUREA [Suspect]
     Active Substance: HYDROXYUREA
     Indication: Polycythaemia vera
     Dosage: ALTERNATING 500MG/D AND 1000MG/D?DAILY DOSE: 5500 MILLIGRAM
     Route: 048
     Dates: start: 20100401, end: 20180417
  2. HYDROXYUREA [Suspect]
     Active Substance: HYDROXYUREA
     Indication: Polycythaemia vera
     Dosage: 500 MG 5 DAYS OUT OF 7?DAILY DOSE: 2500 MILLIGRAM
     Route: 048
     Dates: start: 20180418, end: 20190925
  3. HYDROXYUREA [Suspect]
     Active Substance: HYDROXYUREA
     Indication: Polycythaemia vera
     Dosage: 3500 MG/WEEK?DAILY DOSE: 500 MILLIGRAM
     Route: 048
     Dates: start: 20190925, end: 20200801
  4. HYDROXYUREA [Suspect]
     Active Substance: HYDROXYUREA
     Indication: Polycythaemia vera
     Dosage: ALTERNATING 500MG/D AND 1000MG/D?DAILY DOSE: 5500 MILLIGRAM
     Route: 048
     Dates: start: 20200801, end: 20210417
  5. HYDROXYUREA [Suspect]
     Active Substance: HYDROXYUREA
     Indication: Polycythaemia vera
     Dosage: ALTERNATION: D1 500MG, THEN D2-J3 1000MG
     Route: 048
     Dates: start: 20210417, end: 20240105
  6. HYDROXYUREA [Suspect]
     Active Substance: HYDROXYUREA
     Indication: Polycythaemia vera
     Dosage: 3500 MG/WEEK?DAILY DOSE: 500 MILLIGRAM
     Route: 048
     Dates: start: 20240105, end: 20241115
  7. HYDROXYUREA [Suspect]
     Active Substance: HYDROXYUREA
     Indication: Polycythaemia vera
     Dosage: 1000MG/WEEK
     Route: 048
     Dates: start: 20241125, end: 20241216
  8. Fludex [Concomitant]
     Indication: Hypertension
     Dosage: PROLONGED-RELEASE FILM-COATED TABLET?DAILY DOSE: 1.5 MILLIGRAM
     Route: 048
  9. Lercanidipine Accord [Concomitant]
     Indication: Hypertension
     Dosage: DAILY DOSE: 20 MILLIGRAM
     Route: 048
  10. PERINDOPRIL [Concomitant]
     Active Substance: PERINDOPRIL
     Indication: Hypertension
     Dosage: DAILY DOSE: 4 MILLIGRAM
     Route: 048
  11. KARDEGIC [Concomitant]
     Active Substance: ASPIRIN DL-LYSINE
     Indication: Cardiovascular event prophylaxis
     Dosage: DAILY DOSE: 160 MILLIGRAM
     Route: 048
  12. VESICARE [Concomitant]
     Active Substance: SOLIFENACIN SUCCINATE
     Indication: Urinary incontinence
     Dosage: DAILY DOSE: 5 MILLIGRAM
     Route: 048
  13. LEUCOVORIN [Concomitant]
     Active Substance: LEUCOVORIN\LEUCOVORIN CALCIUM
     Indication: Vitamin supplementation
     Dosage: DAILY DOSE: 5 MILLIGRAM
     Route: 048
  14. POLYETHYLENE GLYCOLS [Concomitant]
     Active Substance: POLYETHYLENE GLYCOLS
     Indication: Constipation
     Dosage: DAILY DOSE: 2 DOSAGE FORM
     Route: 048

REACTIONS (6)
  - Anaemia [Not Recovered/Not Resolved]
  - Thrombocytosis [Unknown]
  - Epistaxis [Unknown]
  - Hypertensive crisis [Unknown]
  - Myelofibrosis [Unknown]
  - Infection [Unknown]

NARRATIVE: CASE EVENT DATE: 20201210
